FAERS Safety Report 4888221-5 (Version None)
Quarter: 2006Q1

REPORT INFORMATION
  Report Type: 
  Country: None (occurrence: None)
  Receive Date: 20060123
  Receipt Date: 20051010
  Transmission Date: 20060701
  Serious: Yes (Hospitalization, Disabling)
  Sender: FDA-Public Use
  Company Number: US-MERCK-0510USA07307

PATIENT
  Age: 50 Year
  Sex: Male
  Weight: 120 kg

DRUGS (25)
  1. DURAGESIC-100 [Concomitant]
     Route: 065
  2. FLOMAX (MORNIFLUMATE) [Concomitant]
     Route: 065
  3. FUROSEMIDE [Concomitant]
     Route: 065
  4. GABITRIL [Concomitant]
     Route: 065
  5. HYDROMORPHONE HYDROCHLORIDE [Concomitant]
     Route: 065
  6. [THERAPY UNSPECIFIED] [Concomitant]
     Route: 065
  7. K-DUR 10 [Concomitant]
     Route: 065
  8. KEFLEX [Concomitant]
     Route: 065
  9. LIPITOR [Concomitant]
     Route: 065
  10. MERIDIA [Concomitant]
     Route: 065
  11. METHOCARBAMOL [Concomitant]
     Route: 065
  12. NORCO [Concomitant]
     Route: 065
  13. NORVASC [Concomitant]
     Route: 065
  14. OXYCONTIN [Concomitant]
     Route: 065
  15. ROXICODONE [Concomitant]
     Route: 065
  16. SENNA-C PLUS [Concomitant]
     Route: 065
  17. VIAGRA [Concomitant]
     Route: 065
  18. [THERAPY UNSPECIFIED] [Concomitant]
     Route: 065
  19. VIOXX [Suspect]
     Indication: BACK PAIN
     Route: 048
     Dates: start: 19990101, end: 20020320
  20. VIOXX [Suspect]
     Indication: PAIN
     Route: 048
     Dates: start: 19990101, end: 20020320
  21. AMBIEN [Concomitant]
     Route: 065
  22. ASPIRIN [Concomitant]
     Route: 065
  23. ATENOLOL [Concomitant]
     Route: 065
  24. CAPTOPRIL [Concomitant]
     Route: 065
  25. DOCUSATE SODIUM [Concomitant]
     Route: 065

REACTIONS (18)
  - ANGINA UNSTABLE [None]
  - ARTERIOSCLEROSIS CORONARY ARTERY [None]
  - CARDIOVASCULAR DISORDER [None]
  - CHEST PAIN [None]
  - CORONARY ARTERY DISEASE [None]
  - CORONARY ARTERY STENOSIS [None]
  - DYSPNOEA [None]
  - MYOCARDIAL INFARCTION [None]
  - MYOCARDIAL ISCHAEMIA [None]
  - OEDEMA PERIPHERAL [None]
  - PALPITATIONS [None]
  - RENAL ARTERY STENOSIS [None]
  - RENAL DISORDER [None]
  - RENAL MASS [None]
  - SPINAL CORD NEOPLASM [None]
  - SPINAL LAMINECTOMY [None]
  - VENTRICULAR DYSFUNCTION [None]
  - VENTRICULAR HYPOKINESIA [None]
